FAERS Safety Report 7822110-9 (Version None)
Quarter: 2011Q4

REPORT INFORMATION
  Report Type: 
  Country: None (occurrence: None)
  Receive Date: 20111018
  Receipt Date: 20111007
  Transmission Date: 20120403
  Serious: Yes (Hospitalization)
  Sender: FDA-Public Use
  Company Number: US-JNJFOC-20111004315

PATIENT
  Sex: Male
  Weight: 79.38 kg

DRUGS (1)
  1. REMICADE [Suspect]
     Indication: RHEUMATOID ARTHRITIS
     Route: 042
     Dates: start: 20090101

REACTIONS (3)
  - RHEUMATOID ARTHRITIS [None]
  - INFLUENZA LIKE ILLNESS [None]
  - HEART RATE INCREASED [None]
